FAERS Safety Report 10714699 (Version 1)
Quarter: 2015Q1

REPORT INFORMATION
  Report Type: Spontaneous
  Country: ES (occurrence: ES)
  Receive Date: 20150115
  Receipt Date: 20150115
  Transmission Date: 20150721
  Serious: Yes (Other)
  Sender: FDA-Public Use
  Company Number: ES-ROXANE LABORATORIES, INC.-2015-RO-00032RO

PATIENT
  Age: 63 Year
  Sex: Male

DRUGS (3)
  1. DEXAMETHASONE. [Suspect]
     Active Substance: DEXAMETHASONE
     Indication: HYPOGLYCAEMIA
     Dosage: 4 MG
     Route: 065
  2. OCTREOTIDE LAR [Suspect]
     Active Substance: OCTREOTIDE
     Indication: HYPOGLYCAEMIA
     Route: 065
  3. DIAZOXIDE [Suspect]
     Active Substance: DIAZOXIDE
     Indication: HYPOGLYCAEMIA
     Dosage: 1500 MG
     Route: 065

REACTIONS (5)
  - Oedema peripheral [Unknown]
  - Respiratory failure [Unknown]
  - Pleural effusion [Unknown]
  - Cushing^s syndrome [Unknown]
  - Pneumonia [None]
